FAERS Safety Report 10043297 (Version 1)
Quarter: 2014Q1

REPORT INFORMATION
  Report Type: Spontaneous
  Country: US (occurrence: None)
  Receive Date: 20140327
  Receipt Date: 20140327
  Transmission Date: 20141002
  Serious: No
  Sender: FDA-Public Use
  Company Number: None

PATIENT
  Age: 43 Year
  Sex: Female
  Weight: 63.5 kg

DRUGS (1)
  1. FERROUS SULFATE [Suspect]
     Indication: ANAEMIA
     Dosage: 2 PILLS
     Route: 048
     Dates: start: 20130203, end: 20130203

REACTIONS (7)
  - Breast tenderness [None]
  - Increased appetite [None]
  - Vision blurred [None]
  - Headache [None]
  - Weight increased [None]
  - Night sweats [None]
  - Product quality issue [None]
